FAERS Safety Report 5144481-7 (Version None)
Quarter: 2006Q4

REPORT INFORMATION
  Report Type: 
  Country: None (occurrence: None)
  Receive Date: 20061106
  Receipt Date: 20061010
  Transmission Date: 20070319
  Serious: Yes (Life-Threatening)
  Sender: FDA-Public Use
  Company Number: DE-BOEHRINGER INGELHEIM GMBH, GERMANY-2006-DE-05342GD

PATIENT
  Age: 80 Year

DRUGS (3)
  1. ACETYLSALICYLIC ACID SRT [Suspect]
  2. PREDNISONE TAB [Suspect]
  3. LOW MOLECULAR WEIGHT HEPARIN [Suspect]
     Indication: THROMBOSIS PROPHYLAXIS

REACTIONS (3)
  - GASTRIC ULCER [None]
  - HAEMATOCHEZIA [None]
  - HAEMOGLOBIN DECREASED [None]
